FAERS Safety Report 8909300 (Version 1)
Quarter: 2012Q4

REPORT INFORMATION
  Report Type: 
  Country: AR (occurrence: AR)
  Receive Date: 20121114
  Receipt Date: 20121114
  Transmission Date: 20130627
  Serious: Yes (Other)
  Sender: FDA-Public Use
  Company Number: AR-MYLANLABS-2012S1022990

PATIENT
  Age: 52 Year
  Sex: Female

DRUGS (3)
  1. DICLOFENAC [Suspect]
     Route: 065
  2. PARACETAMOL [Suspect]
     Route: 065
  3. ASPIRIN [Suspect]
     Route: 065

REACTIONS (3)
  - Urticaria [Unknown]
  - Angioedema [Unknown]
  - Bronchospasm [Unknown]
